FAERS Safety Report 13152385 (Version 2)
Quarter: 2017Q1

REPORT INFORMATION
  Report Type: Spontaneous
  Country: CA (occurrence: CA)
  Receive Date: 20170125
  Receipt Date: 20170207
  Transmission Date: 20170428
  Serious: Yes (Hospitalization, Other)
  Sender: FDA-Public Use
  Company Number: CA-GILEAD-2017-0254549

PATIENT
  Age: 67 Year
  Sex: Male
  Weight: 65.8 kg

DRUGS (7)
  1. NYSTATIN. [Concomitant]
     Active Substance: NYSTATIN
  2. SEEBRI [Concomitant]
     Active Substance: GLYCOPYRRONIUM
     Route: 055
  3. LOPERAMIDE [Concomitant]
     Active Substance: LOPERAMIDE
  4. ZYDELIG [Suspect]
     Active Substance: IDELALISIB
     Indication: B-CELL LYMPHOMA
     Dosage: 150 MG, UNK
     Route: 048
     Dates: start: 201608, end: 20170106
  5. PANTOPRAZOLE [Concomitant]
     Active Substance: PANTOPRAZOLE SODIUM
  6. VENTOLIN [Concomitant]
     Active Substance: ALBUTEROL SULFATE
  7. TAMSULOSIN [Concomitant]
     Active Substance: TAMSULOSIN

REACTIONS (6)
  - Anaemia [Unknown]
  - Stomatitis [Recovering/Resolving]
  - Exfoliative rash [Recovering/Resolving]
  - Diarrhoea [Recovering/Resolving]
  - White blood cell count decreased [Unknown]
  - Febrile neutropenia [Recovering/Resolving]

NARRATIVE: CASE EVENT DATE: 201701
